FAERS Safety Report 5500544-5 (Version None)
Quarter: 2007Q4

REPORT INFORMATION
  Report Type: 
  Country: None (occurrence: None)
  Receive Date: 20071018
  Receipt Date: 20070502
  Transmission Date: 20080405
  Serious: Yes (Hospitalization, Other)
  Sender: FDA-Public Use
  Company Number: 2007036931

PATIENT
  Age: 30 Year
  Sex: Female

DRUGS (2)
  1. NEURONTIN [Suspect]
     Indication: DEPRESSION
     Dates: start: 20020101
  2. NEURONTIN [Suspect]
     Indication: PAIN
     Dates: start: 20020101

REACTIONS (1)
  - SUICIDAL IDEATION [None]
